FAERS Safety Report 23602928 (Version 2)
Quarter: 2024Q1

REPORT INFORMATION
  Report Type: Spontaneous
  Country: US (occurrence: US)
  Receive Date: 20240306
  Receipt Date: 20240325
  Transmission Date: 20240410
  Serious: Yes (Other)
  Sender: FDA-Public Use
  Company Number: US-BRISTOL-MYERS SQUIBB COMPANY-2024-034537

PATIENT
  Age: 66 Year
  Sex: Female

DRUGS (1)
  1. LENALIDOMIDE [Suspect]
     Active Substance: LENALIDOMIDE
     Indication: Anxiety disorder
     Dosage: TAKE 1 CAPSULE BY MOUTH EVERY DAY ON DAYS 1-21 OF EACH CYCLE. SWALLOW CAPSULE WHOLE.
     Route: 048
     Dates: start: 20240301

REACTIONS (18)
  - Fatigue [Unknown]
  - Weight increased [Unknown]
  - Dry skin [Unknown]
  - Diabetes mellitus [Unknown]
  - Hunger [Unknown]
  - Off label use [Unknown]
  - Dyspnoea [Not Recovered/Not Resolved]
  - Chest pain [Not Recovered/Not Resolved]
  - Tremor [Not Recovered/Not Resolved]
  - Vision blurred [Not Recovered/Not Resolved]
  - Blood pressure increased [Not Recovered/Not Resolved]
  - Gait disturbance [Not Recovered/Not Resolved]
  - Thermal burn [Not Recovered/Not Resolved]
  - Osteoarthritis [Not Recovered/Not Resolved]
  - Poor venous access [Not Recovered/Not Resolved]
  - Eye pain [Not Recovered/Not Resolved]
  - Choking [Not Recovered/Not Resolved]
  - Presyncope [Not Recovered/Not Resolved]
